FAERS Safety Report 5192468-0 (Version None)
Quarter: 2006Q4

REPORT INFORMATION
  Report Type: 
  Country: None (occurrence: None)
  Receive Date: 20061220
  Receipt Date: 20061212
  Transmission Date: 20070319
  Serious: Yes (Other)
  Sender: FDA-Public Use
  Company Number: 148289USA

PATIENT
  Age: 57 Year
  Sex: Female
  Weight: 118.8424 kg

DRUGS (3)
  1. LISINOPRIL [Suspect]
     Dosage: 20 MG (20 MG, 1 IN 1 D), ORAL
     Route: 048
     Dates: start: 20060701
  2. VERAPAMIL [Suspect]
     Dosage: 240 MG (240 MG, 1 IN 1 D), ORAL
     Route: 048
     Dates: start: 19940101
  3. HYDROCHLOROTHIAZIDE [Concomitant]

REACTIONS (2)
  - BREAST CANCER [None]
  - UTERINE CANCER [None]
